FAERS Safety Report 10600900 (Version 1)
Quarter: 2014Q4

REPORT INFORMATION
  Report Type: Spontaneous
  Country: US (occurrence: None)
  Receive Date: 20141120
  Receipt Date: 20141120
  Transmission Date: 20150529
  Serious: Yes (Hospitalization)
  Sender: FDA-Public Use
  Company Number: QSC-2014-0863

PATIENT
  Age: 52 Year
  Sex: Female

DRUGS (12)
  1. H.P. ACTHAR [Suspect]
     Active Substance: CORTICOTROPIN
     Indication: MULTIPLE SCLEROSIS RELAPSE
     Dosage: TWO DOSES
     Route: 030
  2. VITAMIN B12 /00056201/ (CYANOCOBALAMIN) [Concomitant]
  3. PANTOPRAZOLE (PANTOPRAZOLE) [Concomitant]
     Active Substance: PANTOPRAZOLE SODIUM
  4. LORAZEPAM (LORAZEPAM) [Concomitant]
     Active Substance: LORAZEPAM
  5. LEVOTHYROXINE (LEVOTHYROXINE) [Concomitant]
     Active Substance: LEVOTHYROXINE
  6. PROZAC [Concomitant]
     Active Substance: FLUOXETINE HYDROCHLORIDE
  7. REBIF [Concomitant]
     Active Substance: INTERFERON BETA-1A
  8. HYDROCODONE (HYDROCODONE) [Concomitant]
     Active Substance: HYDROCODONE
  9. METOPROLOL (METOPROLOL) [Concomitant]
     Active Substance: METOPROLOL
  10. TRAZODONE [Concomitant]
     Active Substance: TRAZODONE HYDROCHLORIDE
  11. FLONASE /00908302/ (MOMETASONE FUROATE) [Concomitant]
  12. SOMA [Concomitant]
     Active Substance: CARISOPRODOL

REACTIONS (2)
  - Anaemia [None]
  - Atrial fibrillation [None]

NARRATIVE: CASE EVENT DATE: 2014
